FAERS Safety Report 4685177-5 (Version None)
Quarter: 2005Q2

REPORT INFORMATION
  Report Type: 
  Country: None (occurrence: None)
  Receive Date: 20050603
  Receipt Date: 20040504
  Transmission Date: 20051028
  Serious: Yes (Life-Threatening, Hospitalization, Other)
  Sender: FDA-Public Use
  Company Number: 197273

PATIENT
  Age: 46 Year
  Sex: Female

DRUGS (6)
  1. AVONEX [Suspect]
     Indication: MULTIPLE SCLEROSIS
     Dosage: 30 UG; QW; IM
     Route: 030
     Dates: start: 19980101, end: 20030501
  2. STABLON [Concomitant]
  3. XANAX [Concomitant]
  4. DIFFU-K [Concomitant]
  5. MEDROL [Concomitant]
  6. DEPAKENE [Concomitant]

REACTIONS (6)
  - AMNESIA [None]
  - DISORIENTATION [None]
  - EPILEPSY [None]
  - GLIOBLASTOMA [None]
  - HEMIANOPIA HOMONYMOUS [None]
  - HEMIPARESIS [None]
